FAERS Safety Report 25102675 (Version 1)
Quarter: 2025Q1

REPORT INFORMATION
  Report Type: Spontaneous
  Country: PL (occurrence: PL)
  Receive Date: 20250321
  Receipt Date: 20250321
  Transmission Date: 20250408
  Serious: Yes (Other)
  Sender: RANBAXY
  Company Number: PL-SUN PHARMACEUTICAL INDUSTRIES LTD-2025R1-499652

PATIENT
  Age: 43 Year
  Sex: Female

DRUGS (4)
  1. DEXTROSE [Suspect]
     Active Substance: DEXTROSE MONOHYDRATE
     Indication: Porphyria acute
     Route: 042
  2. MORPHINE [Suspect]
     Active Substance: MORPHINE
     Indication: Porphyria acute
     Route: 058
  3. POTASSIUM [Suspect]
     Active Substance: POTASSIUM
     Indication: Porphyria acute
     Route: 065
  4. HYDROCORTISONE [Suspect]
     Active Substance: HYDROCORTISONE
     Indication: Porphyria acute
     Dosage: 30 MILLIGRAM, DAILY
     Route: 065

REACTIONS (1)
  - Condition aggravated [Unknown]
